FAERS Safety Report 17965543 (Version 7)
Quarter: 2021Q2

REPORT INFORMATION
  Report Type: Report from Study
  Country: US (occurrence: US)
  Receive Date: 20200630
  Receipt Date: 20210607
  Transmission Date: 20210717
  Serious: Yes (Hospitalization, Other)
  Sender: FDA-Public Use
  Company Number: NVSC2020US180508

PATIENT
  Age: 35 Year
  Sex: Male
  Weight: 65.76 kg

DRUGS (4)
  1. TREPROSTINIL. [Suspect]
     Active Substance: TREPROSTINIL
     Indication: PULMONARY ARTERIAL HYPERTENSION
     Dosage: 84 NG (KG/MIN), CONT
     Route: 042
     Dates: start: 20200507
  2. LETAIRIS [Concomitant]
     Active Substance: AMBRISENTAN
     Indication: PRODUCT USED FOR UNKNOWN INDICATION
     Dosage: UNK
     Route: 065
  3. TREPROSTINIL. [Suspect]
     Active Substance: TREPROSTINIL
     Dosage: 90 NG (KG/MIN) CONT
     Route: 042
     Dates: start: 20200507
  4. TREPROSTINIL. [Suspect]
     Active Substance: TREPROSTINIL
     Dosage: 90 NG (KG/MIN)CONT
     Route: 042
     Dates: start: 20200507

REACTIONS (14)
  - Impaired healing [Unknown]
  - Infusion site irritation [Unknown]
  - Pneumonia [Unknown]
  - Cough [Unknown]
  - Pyrexia [Unknown]
  - Suture related complication [Unknown]
  - Papule [Unknown]
  - Staphylococcal infection [Unknown]
  - Infusion site haemorrhage [Unknown]
  - Pain of skin [Unknown]
  - Pruritus [Unknown]
  - Haemorrhage [Unknown]
  - Rash [Unknown]
  - Infusion site erythema [Unknown]

NARRATIVE: CASE EVENT DATE: 20210409
